FAERS Safety Report 7409815-9 (Version None)
Quarter: 2011Q2

REPORT INFORMATION
  Report Type: 
  Country: None (occurrence: None)
  Receive Date: 20110412
  Receipt Date: 20110407
  Transmission Date: 20111010
  Serious: Yes (Other)
  Sender: FDA-Public Use
  Company Number: SE-PFIZER INC-2009251673

PATIENT
  Age: 34 Year
  Sex: Male

DRUGS (13)
  1. PRIMPERAN TAB [Concomitant]
     Dosage: UNK
  2. ZOLPIDEM [Concomitant]
     Dosage: UNK
  3. ORSTANORM [Concomitant]
     Dosage: UNK
  4. NITROMEX [Concomitant]
     Dosage: UNK
  5. TOILAX [Concomitant]
     Dosage: UNK
  6. PROPAVAN [Suspect]
     Indication: SLEEP DISORDER
     Dosage: 25 MG, 2X/DAY
     Route: 048
     Dates: start: 20090501
  7. OMEPRAZOLE [Concomitant]
     Dosage: UNK
  8. PANACOD [Concomitant]
     Dosage: UNK
  9. CILAXORAL [Concomitant]
     Dosage: UNK
  10. VERSATIS [Suspect]
     Indication: NEURALGIA
     Dosage: 1 DFC
     Route: 062
     Dates: start: 20090501
  11. LYRICA [Suspect]
     Indication: NEURALGIA
     Dosage: 75 MG, 2X/DAY
     Route: 048
     Dates: start: 20090501
  12. XYLOPROCT [Concomitant]
     Dosage: UNK
  13. DIAZEPAM [Concomitant]
     Dosage: UNK

REACTIONS (1)
  - PRIAPISM [None]
